FAERS Safety Report 17914556 (Version 1)
Quarter: 2020Q2

REPORT INFORMATION
  Report Type: Spontaneous
  Country: US (occurrence: US)
  Receive Date: 20200618
  Receipt Date: 20200618
  Transmission Date: 20200714
  Serious: No
  Sender: FDA-Public Use
  Company Number: US-009507513-2006USA006068

PATIENT
  Sex: Female

DRUGS (1)
  1. NEXPLANON [Suspect]
     Active Substance: ETONOGESTREL
     Indication: CONTRACEPTION
     Dosage: 1 IMPLANT (68 MG), FREQUENCY REPORTED AS DAILY (QD)
     Route: 059
     Dates: start: 201804

REACTIONS (2)
  - Pain in extremity [Unknown]
  - Pruritus [Unknown]
